FAERS Safety Report 6110964-6 (Version None)
Quarter: 2009Q1

REPORT INFORMATION
  Report Type: 
  Country: None (occurrence: None)
  Receive Date: 20090311
  Receipt Date: 20080220
  Transmission Date: 20090719
  Serious: No
  Sender: FDA-Public Use
  Company Number: US-KINGPHARMUSA00001-K200800225

PATIENT
  Sex: Female

DRUGS (5)
  1. ALTACE [Suspect]
     Indication: HYPERTENSION
     Dosage: 10 MG, QD
     Route: 048
     Dates: start: 20071101, end: 20080213
  2. ASPIRIN [Concomitant]
     Dosage: UNK, QD
     Route: 048
  3. LIPITOR [Concomitant]
     Indication: HYPERCHOLESTEROLAEMIA
     Dosage: UNK, QD
     Route: 048
     Dates: start: 20071101
  4. M.V.I. [Concomitant]
     Dosage: UNK, QD
     Route: 048
     Dates: start: 20071101
  5. CELEBREX [Concomitant]
     Dosage: UNK, QD
     Route: 048
     Dates: start: 20071101

REACTIONS (7)
  - ASTHMA [None]
  - COUGH [None]
  - DRUG INEFFECTIVE [None]
  - DRY SKIN [None]
  - NASAL CONGESTION [None]
  - OROPHARYNGEAL PAIN [None]
  - SNEEZING [None]
